FAERS Safety Report 21125262 (Version 2)
Quarter: 2022Q3

REPORT INFORMATION
  Report Type: Report from Study
  Country: JP (occurrence: JP)
  Receive Date: 20220725
  Receipt Date: 20220913
  Transmission Date: 20221026
  Serious: Yes (Life-Threatening)
  Sender: FDA-Public Use
  Company Number: JP-AMRYT PHARMACEUTICALS DAC-AEGR003802

PATIENT

DRUGS (19)
  1. METRELEPTIN [Suspect]
     Active Substance: METRELEPTIN
     Indication: Lipoatrophy
     Dosage: 1.44 MG, QD
     Route: 058
     Dates: start: 20180420, end: 20180426
  2. METRELEPTIN [Suspect]
     Active Substance: METRELEPTIN
     Indication: Lipoatrophy
     Dosage: 2.88 MG, QD
     Route: 058
     Dates: start: 20180427
  3. APIDRA [Concomitant]
     Active Substance: INSULIN GLULISINE
     Indication: Product used for unknown indication
     Dosage: 23 INTERNATIONAL UNIT, QD
     Dates: end: 20181208
  4. APIDRA [Concomitant]
     Active Substance: INSULIN GLULISINE
     Dosage: 21 INTERNATIONAL UNIT, QD
     Dates: start: 20181209, end: 20181210
  5. APIDRA [Concomitant]
     Active Substance: INSULIN GLULISINE
     Dosage: 11 INTERNATIONAL UNIT, QD
     Dates: start: 20181211, end: 20181211
  6. INSULIN GLARGINE [Concomitant]
     Active Substance: INSULIN GLARGINE
     Indication: Product used for unknown indication
     Dosage: 36 INTERNATIONAL UNIT, QD
     Dates: end: 20181208
  7. INSULIN GLARGINE [Concomitant]
     Active Substance: INSULIN GLARGINE
     Dosage: 30 INTERNATIONAL UNIT, QD
     Dates: start: 20181209, end: 20181210
  8. INSULIN GLARGINE [Concomitant]
     Active Substance: INSULIN GLARGINE
     Dosage: 16 INTERNATIONAL UNIT, QD
     Dates: start: 20181211, end: 20181211
  9. METGLUCO [Concomitant]
     Active Substance: METFORMIN HYDROCHLORIDE
     Indication: Product used for unknown indication
     Dosage: 1000 MILLIGRAM, QD
     Route: 048
  10. ACTOS [Concomitant]
     Active Substance: PIOGLITAZONE HYDROCHLORIDE
     Indication: Product used for unknown indication
     Dosage: 15 MILLIGRAM, QD
     Route: 048
     Dates: end: 20190305
  11. ACTOS [Concomitant]
     Active Substance: PIOGLITAZONE HYDROCHLORIDE
     Dosage: 30 MILLIGRAM, QD
     Route: 048
     Dates: start: 20190306
  12. BEZAFIBRATE [Concomitant]
     Active Substance: BEZAFIBRATE
     Indication: Product used for unknown indication
     Dosage: 400 MILLIGRAM, QD
     Route: 048
  13. JARDIANCE [Concomitant]
     Active Substance: EMPAGLIFLOZIN
     Indication: Product used for unknown indication
     Dosage: 10 MILLIGRAM, QD
     Route: 048
     Dates: start: 20190515
  14. PEMAFIBRATE [Concomitant]
     Active Substance: PEMAFIBRATE
     Indication: Product used for unknown indication
     Dosage: 1 MILLIGRAM, QD
     Route: 048
     Dates: start: 20200630
  15. ATORVASTATIN CALCIUM [Concomitant]
     Active Substance: ATORVASTATIN CALCIUM
     Indication: Product used for unknown indication
     Dosage: 10 MILLIGRAM, QD
     Route: 048
     Dates: start: 20201222
  16. DIENOGEST [Concomitant]
     Active Substance: DIENOGEST
     Indication: Product used for unknown indication
  17. ALLOPURINOL [Concomitant]
     Active Substance: ALLOPURINOL
     Indication: Product used for unknown indication
     Dosage: UNK
     Dates: end: 20190305
  18. ALFACALCIDOL [Concomitant]
     Active Substance: ALFACALCIDOL
     Indication: Product used for unknown indication
     Dosage: UNK
     Dates: start: 20201210
  19. LEVOTHYROXINE SODIUM [Concomitant]
     Active Substance: LEVOTHYROXINE SODIUM
     Indication: Product used for unknown indication
     Dosage: UNK
     Dates: start: 20210406

REACTIONS (2)
  - Breast cancer [Recovered/Resolved]
  - Desmoid tumour [Recovered/Resolved]

NARRATIVE: CASE EVENT DATE: 20211020
